FAERS Safety Report 6968238-7 (Version None)
Quarter: 2010Q3

REPORT INFORMATION
  Report Type: 
  Country: None (occurrence: None)
  Receive Date: 20100907
  Receipt Date: 20100830
  Transmission Date: 20110219
  Serious: Yes (Other)
  Sender: FDA-Public Use
  Company Number: BR-ROCHE-708005

PATIENT
  Sex: Female
  Weight: 84 kg

DRUGS (7)
  1. TOCILIZUMAB [Suspect]
     Indication: RHEUMATOID ARTHRITIS
     Dosage: FORM: INFUSION
     Route: 042
     Dates: start: 20091130, end: 20091130
  2. TOCILIZUMAB [Suspect]
     Route: 042
     Dates: start: 20091230, end: 20091230
  3. TOCILIZUMAB [Suspect]
     Route: 042
     Dates: start: 20100130, end: 20100130
  4. ARAVA [Concomitant]
     Indication: RHEUMATOID ARTHRITIS
     Dosage: FREQUENCY: 1 TABLET PER DAY, DOSE: 20 MG
  5. SYNTHROID [Concomitant]
     Indication: HYPOTHYROIDISM
     Dosage: DOSE: 175 MCG, FREQ: 1 TABLET/DAY
  6. LEXAPRO [Concomitant]
     Indication: DEPRESSION
     Dosage: DOSE: 20 MG, FREQ: 1 TABLET/DAY,ADDITIONAL  INDICATION: STRESS RELIEVER
  7. SCULPTRA [Suspect]
     Indication: PRODUCT USED FOR UNKNOWN INDICATION
     Route: 065
     Dates: end: 20080101

REACTIONS (4)
  - BENIGN NEOPLASM OF SKIN [None]
  - RHEUMATOID ARTHRITIS [None]
  - SINUSITIS [None]
  - SKIN NODULE [None]
